FAERS Safety Report 7750007-1 (Version None)
Quarter: 2011Q3

REPORT INFORMATION
  Report Type: 
  Country: None (occurrence: None)
  Receive Date: 20110914
  Receipt Date: 20110905
  Transmission Date: 20111222
  Serious: Yes (Hospitalization)
  Sender: FDA-Public Use
  Company Number: US-PFIZER INC-2011209344

PATIENT
  Age: 61 Year
  Sex: Female

DRUGS (4)
  1. TEMAZEPAM [Concomitant]
     Dosage: 1 TABLET
  2. DIPHENHYDRAMINE [Concomitant]
     Dosage: 2 TABLETS
  3. VERAPAMIL HCL [Suspect]
     Indication: HYPERTENSION
     Dosage: 240 MG, APPROXIMATELY 30 TABLETS
  4. SERTRALINE [Concomitant]
     Dosage: 1 TABLET

REACTIONS (4)
  - SHOCK [None]
  - MYOCLONUS [None]
  - NODAL ARRHYTHMIA [None]
  - OVERDOSE [None]
